FAERS Safety Report 23289332 (Version 1)
Quarter: 2023Q4

REPORT INFORMATION
  Report Type: Spontaneous
  Country: US (occurrence: None)
  Receive Date: 20231211
  Receipt Date: 20231211
  Transmission Date: 20240110
  Serious: Yes (Other)
  Sender: FDA-Public Use
  Company Number: None

PATIENT
  Age: 45 Year
  Sex: Female
  Weight: 62.55 kg

DRUGS (12)
  1. WEGOVY [Suspect]
     Active Substance: SEMAGLUTIDE
     Indication: Weight decreased
  2. WELLBUTRIN XL [Concomitant]
     Active Substance: BUPROPION HYDROCHLORIDE
  3. CLONAZEPAM [Concomitant]
     Active Substance: CLONAZEPAM
  4. LUNESTA [Concomitant]
     Active Substance: ESZOPICLONE
  5. LAMICTAL [Concomitant]
     Active Substance: LAMOTRIGINE
  6. propranolol xr [Concomitant]
  7. IMITREX [Concomitant]
     Active Substance: SUMATRIPTAN SUCCINATE
  8. UNSPECIFIED INGREDIENT [Concomitant]
     Active Substance: UNSPECIFIED INGREDIENT
  9. TOPAMAX [Concomitant]
     Active Substance: TOPIRAMATE
  10. addderall xr [Concomitant]
  11. MELATONIN [Concomitant]
     Active Substance: MELATONIN
  12. EXCEDRIN MIGRAINE [Concomitant]
     Active Substance: ACETAMINOPHEN\ASPIRIN\CAFFEINE

REACTIONS (1)
  - Dental caries [None]

NARRATIVE: CASE EVENT DATE: 20231129
